FAERS Safety Report 8563848-8 (Version None)
Quarter: 2012Q3

REPORT INFORMATION
  Report Type: 
  Country: None (occurrence: None)
  Receive Date: 20120712
  Receipt Date: 20120627
  Transmission Date: 20120928
  Serious: Yes (Life-Threatening, Hospitalization)
  Sender: FDA-Public Use
  Company Number: AEESP201200350

PATIENT
  Age: 57 Year
  Sex: Male

DRUGS (4)
  1. ALBUMIN (HUMAN) [Suspect]
     Indication: ASCITES
     Dosage: 100 GM;1X IV
     Route: 042
     Dates: start: 20120621, end: 20120621
  2. ALBUMIN (HUMAN) [Suspect]
     Indication: HEPATIC CIRRHOSIS
     Dosage: 100 GM;1X IV
     Route: 042
     Dates: start: 20120621, end: 20120621
  3. PROPRANOLOL [Concomitant]
  4. DIURETICS (DIURETICS) [Concomitant]

REACTIONS (3)
  - OESOPHAGEAL VARICES HAEMORRHAGE [None]
  - HEPATIC ENCEPHALOPATHY [None]
  - PORTAL HYPERTENSIVE GASTROPATHY [None]
